FAERS Safety Report 22586149 (Version 1)
Quarter: 2023Q2

REPORT INFORMATION
  Report Type: Spontaneous
  Country: GB (occurrence: GB)
  Receive Date: 20230610
  Receipt Date: 20230610
  Transmission Date: 20230721
  Serious: Yes (Life-Threatening, Other)
  Sender: FDA-Public Use
  Company Number: GB-BRISTOL-MYERS SQUIBB COMPANY-2023-072023

PATIENT
  Age: 58 Year
  Sex: Male

DRUGS (33)
  1. ESOMEPRAZOLE [Suspect]
     Active Substance: ESOMEPRAZOLE
     Indication: Reflux laryngitis
     Dosage: 40 MILLIGRAM
     Route: 065
  2. SIMVASTATIN [Suspect]
     Active Substance: SIMVASTATIN
     Indication: Product used for unknown indication
     Dosage: 40 MILLIGRAM
     Route: 065
  3. SIMVASTATIN [Suspect]
     Active Substance: SIMVASTATIN
     Route: 065
     Dates: start: 20221123
  4. LEVOTHYROXINE [Suspect]
     Active Substance: LEVOTHYROXINE
     Indication: Ill-defined disorder
     Dosage: 12 MILLIGRAM
     Route: 065
  5. LANSOPRAZOLE [Suspect]
     Active Substance: LANSOPRAZOLE
     Indication: Atrial fibrillation
     Dosage: UNK
     Route: 065
     Dates: start: 20210628
  6. LANSOPRAZOLE [Suspect]
     Active Substance: LANSOPRAZOLE
     Route: 065
  7. APIXABAN [Suspect]
     Active Substance: APIXABAN
     Indication: Cerebrovascular accident prophylaxis
     Dosage: 10 MILLIGRAM
     Route: 050
     Dates: start: 20180207, end: 20180207
  8. BISOPROLOL [Suspect]
     Active Substance: BISOPROLOL
     Indication: Cerebrovascular accident prophylaxis
     Dosage: 10 MILLIGRAM
     Route: 065
     Dates: start: 20230301
  9. CANDESARTAN [Suspect]
     Active Substance: CANDESARTAN
     Indication: Product used for unknown indication
     Dosage: 1 DOSAGE FORM
     Route: 065
     Dates: start: 20220222
  10. CETIRIZINE [Suspect]
     Active Substance: CETIRIZINE HYDROCHLORIDE
     Indication: Product used for unknown indication
     Dosage: 10 MILLIGRAM
     Route: 050
  11. ASTRAZENECA COVID-19 VACCINE [Suspect]
     Active Substance: AZD-1222
     Indication: COVID-19 immunisation
     Dosage: UNK
     Route: 050
     Dates: start: 20210208, end: 20221214
  12. ASTRAZENECA COVID-19 VACCINE [Suspect]
     Active Substance: AZD-1222
     Route: 050
     Dates: start: 20210507
  13. ASTRAZENECA COVID-19 VACCINE [Suspect]
     Active Substance: AZD-1222
     Route: 050
     Dates: start: 20210312
  14. DAPAGLIFLOZIN [Suspect]
     Active Substance: DAPAGLIFLOZIN
     Indication: Ill-defined disorder
     Dosage: 10 MILLIGRAM
     Route: 050
     Dates: start: 20230217
  15. DIGOXIN [Suspect]
     Active Substance: DIGOXIN
     Indication: Cerebrovascular accident prophylaxis
     Dosage: 63 MICROGRAM
     Route: 065
  16. ISOSORBIDE MONONITRATE [Suspect]
     Active Substance: ISOSORBIDE MONONITRATE
     Indication: Product used for unknown indication
     Dosage: 50 MILLIGRAM
     Route: 050
  17. FELODIPINE [Suspect]
     Active Substance: FELODIPINE
     Dosage: UNK
     Route: 065
  18. FELODIPINE [Suspect]
     Active Substance: FELODIPINE
     Route: 065
  19. FELODIPINE [Suspect]
     Active Substance: FELODIPINE
     Indication: Blood pressure abnormal
  20. HYDROCHLOROTHIAZIDE [Suspect]
     Active Substance: HYDROCHLOROTHIAZIDE
     Indication: Product used for unknown indication
     Dosage: 2 MILLIGRAM
     Route: 065
  21. IMDUR [Suspect]
     Active Substance: ISOSORBIDE MONONITRATE
     Indication: Product used for unknown indication
     Dosage: UNK
     Route: 050
  22. ISOSORBIDE DINITRATE [Suspect]
     Active Substance: ISOSORBIDE DINITRATE
     Indication: Product used for unknown indication
     Dosage: 50 MILLIGRAM
     Route: 050
  23. LINAGLIPTIN [Suspect]
     Active Substance: LINAGLIPTIN
     Indication: Product used for unknown indication
     Dosage: 5 MILLIGRAM
     Route: 065
  24. NAPROXEN [Suspect]
     Active Substance: NAPROXEN
     Dosage: UNK
     Route: 065
  25. NAPROXEN [Suspect]
     Active Substance: NAPROXEN
     Route: 065
  26. NAPROXEN [Suspect]
     Active Substance: NAPROXEN
     Indication: Product used for unknown indication
  27. AMITRIPTYLINE HYDROCHLORIDE [Concomitant]
     Active Substance: AMITRIPTYLINE HYDROCHLORIDE
     Indication: Product used for unknown indication
     Dosage: UNK
     Route: 065
     Dates: start: 20221123
  28. BENDROFLUMETHIAZIDE [Concomitant]
     Active Substance: BENDROFLUMETHIAZIDE
     Indication: Product used for unknown indication
     Dosage: UNK
     Route: 065
     Dates: start: 20221123
  29. ESTRIOL [Concomitant]
     Active Substance: ESTRIOL
     Indication: Product used for unknown indication
     Dosage: UNK
     Route: 065
     Dates: start: 20221123
  30. FOSFOMYCIN [Concomitant]
     Active Substance: FOSFOMYCIN
     Indication: Product used for unknown indication
     Dosage: UNK
     Route: 065
     Dates: start: 20230227, end: 20230228
  31. LEVOTHYROXINE [Concomitant]
     Active Substance: LEVOTHYROXINE
     Indication: Ill-defined disorder
     Dosage: UNK
     Route: 065
     Dates: start: 20210628
  32. LOSARTAN POTASSIUM [Concomitant]
     Active Substance: LOSARTAN POTASSIUM
     Indication: Ill-defined disorder
     Dosage: UNK
     Route: 065
     Dates: start: 20210628
  33. OMEPRAZOLE [Concomitant]
     Active Substance: OMEPRAZOLE
     Indication: Product used for unknown indication
     Dosage: UNK
     Route: 065
     Dates: start: 20221123

REACTIONS (61)
  - Diarrhoea [Recovered/Resolved]
  - Malaise [Unknown]
  - Abdominal discomfort [Unknown]
  - Headache [Not Recovered/Not Resolved]
  - Nausea [Recovered/Resolved]
  - Hallucination [Recovered/Resolved]
  - Angioedema [Recovered/Resolved]
  - COVID-19 [Recovered/Resolved with Sequelae]
  - Dizziness [Recovered/Resolved]
  - Tinnitus [Not Recovered/Not Resolved]
  - Arthralgia [Recovered/Resolved]
  - Pain of skin [Recovered/Resolved]
  - Peripheral swelling [Recovered/Resolved]
  - Disturbance in attention [Recovered/Resolved]
  - Cognitive disorder [Recovered/Resolved]
  - Memory impairment [Recovering/Resolving]
  - Visual impairment [Not Recovered/Not Resolved]
  - Blindness [Not Recovered/Not Resolved]
  - Diplopia [Not Recovered/Not Resolved]
  - Vasculitis [Not Recovered/Not Resolved]
  - Carotid artery occlusion [Recovered/Resolved with Sequelae]
  - Transient ischaemic attack [Recovered/Resolved]
  - Pruritus genital [Recovered/Resolved]
  - Sleep terror [Recovered/Resolved]
  - Fatigue [Unknown]
  - Vomiting [Recovered/Resolved]
  - Ventricular tachycardia [Not Recovered/Not Resolved]
  - Pericarditis [Not Recovered/Not Resolved]
  - Cardiospasm [Not Recovered/Not Resolved]
  - Dyspnoea [Unknown]
  - Atrial tachycardia [Not Recovered/Not Resolved]
  - Anxiety [Not Recovered/Not Resolved]
  - Muscular weakness [Unknown]
  - Feeling abnormal [Unknown]
  - Insomnia [Unknown]
  - Heart rate increased [Unknown]
  - Muscle twitching [Unknown]
  - Abdominal pain upper [Unknown]
  - Dehydration [Unknown]
  - Hyperhidrosis [Unknown]
  - Rash [Recovering/Resolving]
  - Lip swelling [Recovering/Resolving]
  - Pruritus [Recovering/Resolving]
  - Palmoplantar keratoderma [Not Recovered/Not Resolved]
  - Dry skin [Not Recovered/Not Resolved]
  - Myocardial infarction [Recovered/Resolved with Sequelae]
  - Chest pain [Unknown]
  - Palpitations [Unknown]
  - Subarachnoid haemorrhage [Recovered/Resolved with Sequelae]
  - Pain [Unknown]
  - Anosmia [Unknown]
  - Eye pruritus [Unknown]
  - Facial pain [Unknown]
  - Back pain [Unknown]
  - Blood glucose increased [Unknown]
  - Amnesia [Not Recovered/Not Resolved]
  - Alopecia [Recovered/Resolved with Sequelae]
  - Pyrexia [Recovered/Resolved]
  - Tension headache [Not Recovered/Not Resolved]
  - Migraine [Not Recovered/Not Resolved]
  - Intentional product use issue [Unknown]

NARRATIVE: CASE EVENT DATE: 20210209
